FAERS Safety Report 22221021 (Version 4)
Quarter: 2023Q2

REPORT INFORMATION
  Report Type: Report from Study
  Country: US (occurrence: US)
  Receive Date: 20230418
  Receipt Date: 20230626
  Transmission Date: 20230721
  Serious: Yes (Other)
  Sender: FDA-Public Use
  Company Number: US-002147023-NVSC2023US087790

PATIENT
  Age: 49 Year
  Sex: Female
  Weight: 70.76 kg

DRUGS (4)
  1. COSENTYX [Suspect]
     Active Substance: SECUKINUMAB
     Indication: Ankylosing spondylitis
     Dosage: UNK
     Route: 065
  2. LUTEIN + [Concomitant]
     Indication: Ankylosing spondylitis
     Dosage: UNK
     Route: 065
  3. MELOXICAM [Concomitant]
     Active Substance: MELOXICAM
     Indication: Ankylosing spondylitis
     Dosage: UNK
     Route: 065
  4. MAGNESIUM [Concomitant]
     Active Substance: MAGNESIUM
     Indication: Ankylosing spondylitis
     Dosage: UNK
     Route: 065

REACTIONS (36)
  - Histoplasmosis [Unknown]
  - Uveitis [Unknown]
  - Ankylosing spondylitis [Unknown]
  - Fatigue [Unknown]
  - Neck pain [Recovering/Resolving]
  - Musculoskeletal stiffness [Unknown]
  - Pyrexia [Unknown]
  - Pain [Unknown]
  - Night sweats [Unknown]
  - Vision blurred [Unknown]
  - Visual impairment [Unknown]
  - Temperature intolerance [Unknown]
  - Muscular weakness [Unknown]
  - Hypoaesthesia [Unknown]
  - Insomnia [Unknown]
  - Muscle spasms [Unknown]
  - HLA marker study positive [Unknown]
  - Pain in extremity [Unknown]
  - Hypokinesia [Unknown]
  - Inflammation [Unknown]
  - Infection [Unknown]
  - Headache [Recovering/Resolving]
  - Irritable bowel syndrome [Not Recovered/Not Resolved]
  - Constipation [Unknown]
  - Spondylitis [Unknown]
  - Ovarian failure postoperative [Unknown]
  - Enzyme abnormality [Unknown]
  - Intervertebral disc degeneration [Unknown]
  - Osteoarthritis [Unknown]
  - Arthralgia [Unknown]
  - Joint swelling [Unknown]
  - Urinary incontinence [Unknown]
  - Pollakiuria [Unknown]
  - Vitamin D deficiency [Unknown]
  - Goitre [Unknown]
  - Therapeutic product effect incomplete [Unknown]

NARRATIVE: CASE EVENT DATE: 20210501
